FAERS Safety Report 7343271-4 (Version None)
Quarter: 2011Q1

REPORT INFORMATION
  Report Type: 
  Country: None (occurrence: None)
  Receive Date: 20110310
  Receipt Date: 20110225
  Transmission Date: 20110831
  Serious: Yes (Disabling)
  Sender: FDA-Public Use
  Company Number: GB-SANOFI-AVENTIS-2011SA007304

PATIENT
  Age: 76 Year
  Sex: Female
  Weight: 53.97 kg

DRUGS (16)
  1. AMIODARONE HYDROCHLORIDE [Concomitant]
     Route: 065
     Dates: end: 20110123
  2. ATORVASTATIN [Concomitant]
  3. MULTAQ [Suspect]
     Route: 048
     Dates: start: 20110124, end: 20110131
  4. BISOPROLOL FUMARATE [Concomitant]
  5. ISOSORBIDE MONONITRATE [Concomitant]
  6. CO-CODAMOL [Concomitant]
  7. HYDROXOCOBALAMIN [Concomitant]
  8. LANSOPRAZOLE [Concomitant]
  9. EPLERENONE [Concomitant]
  10. FERROUS FUMARATE [Concomitant]
  11. FOLIC ACID [Concomitant]
  12. NITROGLYCERIN [Concomitant]
  13. ASPIRIN [Concomitant]
  14. FUROSEMIDE [Concomitant]
  15. LIOTHYRONINE SODIUM [Concomitant]
  16. VALSARTAN [Concomitant]

REACTIONS (5)
  - IMPAIRED DRIVING ABILITY [None]
  - MUSCULAR WEAKNESS [None]
  - DIARRHOEA [None]
  - ABDOMINAL PAIN UPPER [None]
  - UNDERDOSE [None]
